FAERS Safety Report 9529223 (Version 1)
Quarter: 2013Q3

REPORT INFORMATION
  Report Type: Spontaneous
  Country: CA (occurrence: CA)
  Receive Date: 20130917
  Receipt Date: 20130917
  Transmission Date: 20140515
  Serious: Yes (Other)
  Sender: FDA-Public Use
  Company Number: CA-ROCHE-1275044

PATIENT
  Age: 76 Year
  Sex: Male
  Weight: 88.53 kg

DRUGS (12)
  1. TAMIFLU [Suspect]
     Indication: PRODUCT USED FOR UNKNOWN INDICATION
     Dosage: THERAPY DURATION: 8.0 DAYS
     Route: 048
  2. ACETAMINOPHEN [Concomitant]
     Route: 065
  3. ARICEPT [Concomitant]
     Route: 065
  4. ATIVAN [Concomitant]
     Route: 065
  5. COLACE [Concomitant]
     Route: 065
  6. EFFEXOR XR [Concomitant]
     Route: 065
  7. EPIVAL [Concomitant]
     Route: 065
  8. QUETIAPINE [Concomitant]
     Route: 065
  9. SENOKOT [Concomitant]
     Route: 065
  10. WARFARIN [Concomitant]
     Route: 065
  11. DIGOXIN [Concomitant]
  12. SIMVASTATIN [Concomitant]
     Route: 065

REACTIONS (4)
  - Abnormal behaviour [Recovered/Resolved]
  - Confusional state [Recovered/Resolved]
  - Fall [Unknown]
  - Hallucination, visual [Recovered/Resolved]
